FAERS Safety Report 5490799-8 (Version None)
Quarter: 2007Q4

REPORT INFORMATION
  Report Type: 
  Country: None (occurrence: None)
  Receive Date: 20071019
  Receipt Date: 20071010
  Transmission Date: 20080405
  Serious: Yes (Other)
  Sender: FDA-Public Use
  Company Number: ZA-JNJFOC-20071002621

PATIENT
  Age: 64 Year
  Sex: Female

DRUGS (2)
  1. TAVANIC [Suspect]
     Indication: UPPER RESPIRATORY TRACT INFECTION
     Route: 048
  2. IBUPROFEN [Concomitant]
     Route: 065

REACTIONS (1)
  - DEAFNESS [None]
